FAERS Safety Report 13918544 (Version 2)
Quarter: 2017Q4

REPORT INFORMATION
  Report Type: Spontaneous
  Country: CZ (occurrence: CZ)
  Receive Date: 20170829
  Receipt Date: 20171010
  Transmission Date: 20180320
  Serious: Yes (Death, Other)
  Sender: FDA-Public Use
  Company Number: CZ-ARIAD PHARMACEUTICALS, INC-2017CZ008803

PATIENT

DRUGS (1)
  1. ICLUSIG [Suspect]
     Active Substance: PONATINIB
     Indication: ACUTE LYMPHOCYTIC LEUKAEMIA RECURRENT
     Dosage: 30 MG, QD
     Route: 048
     Dates: start: 20170418, end: 20170628

REACTIONS (2)
  - Multiple organ dysfunction syndrome [Fatal]
  - Disease progression [Fatal]
